FAERS Safety Report 9973783 (Version 2)
Quarter: 2014Q1

REPORT INFORMATION
  Report Type: Spontaneous
  Country: US (occurrence: US)
  Receive Date: 20140306
  Receipt Date: 20140306
  Transmission Date: 20141002
  Serious: No
  Sender: FDA-Public Use
  Company Number: US-GILEAD-2013-0068001

PATIENT
  Sex: Female

DRUGS (1)
  1. VIREAD [Suspect]
     Indication: ANTIVIRAL PROPHYLAXIS

REACTIONS (1)
  - Pregnancy [Unknown]
